FAERS Safety Report 20570424 (Version 1)
Quarter: 2022Q1

REPORT INFORMATION
  Report Type: Spontaneous
  Country: US (occurrence: US)
  Receive Date: 20220309
  Receipt Date: 20220309
  Transmission Date: 20220423
  Serious: Yes (Hospitalization)
  Sender: FDA-Public Use
  Company Number: US-CADILA HEALTHCARE LIMITED-US-ZYDUS-075519

PATIENT

DRUGS (6)
  1. METHOTREXATE [Suspect]
     Active Substance: METHOTREXATE
     Indication: Diffuse large B-cell lymphoma
     Dosage: 4.96 GRAM PER SQUARE METRE
     Route: 042
  2. RITUXIMAB [Concomitant]
     Active Substance: RITUXIMAB
     Indication: B-cell lymphoma
     Dosage: 375 MILLIGRAM/SQ. METER
     Route: 065
  3. LEUCOVORIN [Concomitant]
     Active Substance: LEUCOVORIN
     Indication: Product used for unknown indication
     Dosage: UNK
     Route: 065
  4. SODIUM BICARBONATE [Concomitant]
     Active Substance: SODIUM BICARBONATE
     Indication: Product used for unknown indication
     Dosage: UNK
     Route: 042
  5. FUROSEMIDE [Concomitant]
     Active Substance: FUROSEMIDE
     Indication: Hypervolaemia
     Dosage: UNK
     Route: 065
  6. ACETAZOLAMIDE [Concomitant]
     Active Substance: ACETAZOLAMIDE
     Indication: Metabolic alkalosis
     Dosage: UNK
     Route: 065

REACTIONS (1)
  - Crystal nephropathy [Unknown]
